FAERS Safety Report 25136049 (Version 4)
Quarter: 2025Q2

REPORT INFORMATION
  Report Type: Spontaneous
  Country: US (occurrence: US)
  Receive Date: 20250328
  Receipt Date: 20250512
  Transmission Date: 20250716
  Serious: No
  Sender: KARYOPHARM THERAPEUTICS
  Company Number: US-KARYOPHARM-2025KPT100057

PATIENT

DRUGS (7)
  1. SELINEXOR [Suspect]
     Active Substance: SELINEXOR
     Indication: Plasma cell myeloma recurrent
     Route: 048
     Dates: start: 20250321
  2. ACYCLOVIR [Concomitant]
     Active Substance: ACYCLOVIR
  3. LYRICA [Concomitant]
     Active Substance: PREGABALIN
  4. MORPHINE SULFATE [Concomitant]
     Active Substance: MORPHINE SULFATE
  5. OXYCODONE HYDROCHLORIDE [Concomitant]
     Active Substance: OXYCODONE HYDROCHLORIDE
  6. XARELTO [Concomitant]
     Active Substance: RIVAROXABAN
  7. POMALYST [Concomitant]
     Active Substance: POMALIDOMIDE

REACTIONS (5)
  - Ill-defined disorder [Recovered/Resolved]
  - Muscle spasms [Unknown]
  - Nausea [Not Recovered/Not Resolved]
  - Fatigue [Recovering/Resolving]
  - Inappropriate schedule of product administration [Unknown]

NARRATIVE: CASE EVENT DATE: 20250101
